FAERS Safety Report 13881081 (Version 1)
Quarter: 2017Q3

REPORT INFORMATION
  Report Type: Spontaneous
  Country: US (occurrence: US)
  Receive Date: 20170818
  Receipt Date: 20170818
  Transmission Date: 20171127
  Serious: Yes (Hospitalization, Other)
  Sender: FDA-Public Use
  Company Number: US-TAKEDA-2017TUS017124

PATIENT
  Sex: Female
  Weight: 74.83 kg

DRUGS (9)
  1. TENACID                            /00820501/ [Concomitant]
     Indication: THYROID DISORDER
     Dosage: UNK
     Route: 048
     Dates: start: 20170801
  2. AZELASTIN [Concomitant]
     Indication: MULTIPLE ALLERGIES
     Dosage: UNK
     Route: 045
  3. CALCIUM CITRATE [Concomitant]
     Active Substance: CALCIUM CITRATE
     Indication: SUPPLEMENTATION THERAPY
     Dosage: UNK
     Route: 048
     Dates: start: 201708
  4. SYNTHROID [Concomitant]
     Active Substance: LEVOTHYROXINE SODIUM
     Indication: THYROID DISORDER
     Dosage: UNK
     Route: 048
     Dates: end: 20170731
  5. LORATADINE. [Concomitant]
     Active Substance: LORATADINE
     Indication: HYPERSENSITIVITY
     Dosage: UNK, QD
     Route: 048
  6. ULORIC [Suspect]
     Active Substance: FEBUXOSTAT
     Indication: BLOOD URIC ACID INCREASED
     Dosage: 40 MG, QD
     Route: 048
     Dates: start: 2016
  7. ACETAMINOPHEN. [Concomitant]
     Active Substance: ACETAMINOPHEN
     Indication: PAIN
     Dosage: UNK, QD
     Dates: start: 20170802
  8. LYRICA [Concomitant]
     Active Substance: PREGABALIN
     Indication: NEUROPATHY PERIPHERAL
     Dosage: UNK
     Route: 048
     Dates: start: 201608, end: 20170713
  9. GABAPENTIN. [Concomitant]
     Active Substance: GABAPENTIN
     Indication: NEUROPATHY PERIPHERAL
     Dosage: UNK
     Route: 048
     Dates: start: 20170814

REACTIONS (3)
  - Spinal column stenosis [Recovering/Resolving]
  - Condition aggravated [Recovering/Resolving]
  - Arthritis [Unknown]
